FAERS Safety Report 9916512 (Version 1)
Quarter: 2014Q1

REPORT INFORMATION
  Report Type: Spontaneous
  Country: GB (occurrence: None)
  Receive Date: 20140219
  Receipt Date: 20140219
  Transmission Date: 20141002
  Serious: Yes (Other)
  Sender: FDA-Public Use
  Company Number: 2184880

PATIENT
  Sex: Male

DRUGS (4)
  1. CALCIUM FOLINATE [Suspect]
     Indication: COLORECTAL CANCER METASTATIC
     Dosage: 1 CYCLICAL, INTRAVENOUS
     Route: 042
  2. IRINOTECAN HYDROCHLORIDE [Suspect]
     Indication: COLORECTAL CANCER METASTATIC
     Dosage: 1 CYCLICAL, INTRAVENOUS
     Route: 042
  3. FLUOROURACIL [Suspect]
     Indication: COLORECTAL CANCER METASTATIC
     Dosage: CYCLICAL , INTRAVENOUS
     Route: 042
  4. AFLIBERCEPT [Suspect]
     Indication: COLORECTAL CANCER METASTATIC
     Dosage: 1 CYLICAL, INTRAVENOUS (
     Route: 042

REACTIONS (2)
  - Pulmonary embolism [None]
  - Cardiac disorder [None]
